FAERS Safety Report 5453279-1 (Version None)
Quarter: 2007Q3

REPORT INFORMATION
  Report Type: 
  Country: None (occurrence: None)
  Receive Date: 20070914
  Receipt Date: 20070903
  Transmission Date: 20080115
  Serious: Yes (Other)
  Sender: FDA-Public Use
  Company Number: FR-PFIZER INC-2007075861

PATIENT
  Sex: Female

DRUGS (1)
  1. LYRICA [Suspect]
     Indication: MITOCHONDRIAL MYOPATHY

REACTIONS (13)
  - AFFECTIVE DISORDER [None]
  - AGITATION [None]
  - ANOREXIA [None]
  - DEPRESSION [None]
  - DYSURIA [None]
  - HALLUCINATION [None]
  - INSOMNIA [None]
  - NERVOUSNESS [None]
  - PANIC REACTION [None]
  - PERSONALITY CHANGE [None]
  - SPEECH DISORDER [None]
  - THIRST [None]
  - URINARY INCONTINENCE [None]
